FAERS Safety Report 15197380 (Version 2)
Quarter: 2018Q3

REPORT INFORMATION
  Report Type: Spontaneous
  Country: DE (occurrence: DE)
  Receive Date: 20180725
  Receipt Date: 20180725
  Transmission Date: 20181010
  Serious: Yes (Hospitalization, Disabling)
  Sender: FDA-Public Use
  Company Number: PHHY2018DE055100

PATIENT
  Age: 80 Year
  Sex: Female
  Weight: 58 kg

DRUGS (11)
  1. ROACTEMRA [Suspect]
     Active Substance: TOCILIZUMAB
     Dosage: 480 MG, Q4W
     Route: 042
     Dates: start: 20130903
  2. ROACTEMRA [Suspect]
     Active Substance: TOCILIZUMAB
     Dosage: 480 MG, Q4W
     Route: 042
     Dates: start: 20131002
  3. KALINOR RETARD [Suspect]
     Active Substance: POTASSIUM CHLORIDE
     Indication: HYPOKALAEMIA
     Dosage: 1 OT, QD
     Route: 048
  4. L?THYROX JOD [Suspect]
     Active Substance: LEVOTHYROXINE SODIUM\POTASSIUM IODIDE
     Indication: PROPHYLAXIS
     Dosage: UNK
     Route: 048
  5. HYDROCHLOROTHIAZIDE. [Suspect]
     Active Substance: HYDROCHLOROTHIAZIDE
     Indication: HYPERTENSION
     Dosage: 1 OT, QD
     Route: 048
  6. ROACTEMRA [Suspect]
     Active Substance: TOCILIZUMAB
     Dosage: 480 MG, Q4W
     Route: 042
     Dates: start: 20131204
  7. ALENDRONIC ACID [Suspect]
     Active Substance: ALENDRONIC ACID
     Indication: OSTEOPOROSIS
     Dosage: 70 MG, QW
     Route: 048
  8. PREDNISOLON [Suspect]
     Active Substance: PREDNISOLONE
     Indication: RHEUMATOID ARTHRITIS
     Dosage: 3 MG, QD
     Route: 048
  9. ROACTEMRA [Suspect]
     Active Substance: TOCILIZUMAB
     Indication: RHEUMATOID ARTHRITIS
     Dosage: 480 MG, Q4W
     Route: 042
     Dates: start: 20130227
  10. ROACTEMRA [Suspect]
     Active Substance: TOCILIZUMAB
     Dosage: 480 MG, Q4W
     Route: 042
     Dates: start: 20131204
  11. ROACTEMRA [Suspect]
     Active Substance: TOCILIZUMAB
     Dosage: 480 MG, Q4W
     Route: 042
     Dates: start: 20131030

REACTIONS (3)
  - Fall [Unknown]
  - Purulence [Recovered/Resolved with Sequelae]
  - Comminuted fracture [Recovered/Resolved with Sequelae]

NARRATIVE: CASE EVENT DATE: 20140106
